FAERS Safety Report 15370496 (Version 1)
Quarter: 2018Q3

REPORT INFORMATION
  Report Type: Spontaneous
  Country: US (occurrence: US)
  Receive Date: 20180904
  Receipt Date: 20180904
  Transmission Date: 20181010
  Serious: No
  Sender: FDA-Public Use
  Company Number: None

PATIENT
  Age: 55 Year
  Sex: Female
  Weight: 133.81 kg

DRUGS (5)
  1. RASUVO [Suspect]
     Active Substance: METHOTREXATE SODIUM
     Indication: VITAMIN D DEFICIENCY
     Route: 058
     Dates: start: 201603
  2. RASUVO [Suspect]
     Active Substance: METHOTREXATE SODIUM
     Indication: POLYARTHRITIS
     Route: 058
     Dates: start: 201603
  3. REMICADE [Suspect]
     Active Substance: INFLIXIMAB
     Indication: RHEUMATOID ARTHRITIS
     Dosage: OTHER FREQUENCY:WEEK 0, 2, 6, THEN;?
     Route: 042
     Dates: start: 201701
  4. REMICADE [Suspect]
     Active Substance: INFLIXIMAB
     Indication: VITAMIN D DEFICIENCY
     Dosage: OTHER FREQUENCY:WEEK 0, 2, 6, THEN;?
     Route: 042
     Dates: start: 201701
  5. RASUVO [Suspect]
     Active Substance: METHOTREXATE SODIUM
     Indication: RHEUMATOID ARTHRITIS
     Route: 058
     Dates: start: 201603

REACTIONS (3)
  - Fluid retention [None]
  - Renal function test abnormal [None]
  - Weight increased [None]
